FAERS Safety Report 14980197 (Version 1)
Quarter: 2018Q2

REPORT INFORMATION
  Report Type: Spontaneous
  Country: US (occurrence: US)
  Receive Date: 20180516
  Receipt Date: 20180516
  Transmission Date: 20180711
  Serious: Yes (Hospitalization)
  Sender: FDA-Public Use
  Company Number: None

PATIENT
  Age: 65 Year
  Sex: Female

DRUGS (17)
  1. TRULANCE [Concomitant]
     Active Substance: PLECANATIDE
  2. ENBREL [Suspect]
     Active Substance: ETANERCEPT
     Indication: RHEUMATOID ARTHRITIS
     Route: 058
     Dates: start: 20140418
  3. SENNA [Concomitant]
     Active Substance: SENNA LEAF\SENNOSIDES\SENNOSIDES A AND B
  4. HYDROXYCHLOR [Concomitant]
     Active Substance: HYDROXYCHLOROQUINE
  5. DESVENLAFAX [Concomitant]
  6. ALBUTEROL. [Concomitant]
     Active Substance: ALBUTEROL
  7. PRAVASTATIN. [Concomitant]
     Active Substance: PRAVASTATIN
  8. PROAIR HFA [Concomitant]
     Active Substance: ALBUTEROL SULFATE
  9. MONTELUKAST [Concomitant]
     Active Substance: MONTELUKAST SODIUM
  10. RANITIDINE. [Concomitant]
     Active Substance: RANITIDINE
  11. LINZESS [Concomitant]
     Active Substance: LINACLOTIDE
  12. ANDRO ELLIPT [Concomitant]
  13. PRISTIQ EXTENDED-RELEASE [Concomitant]
     Active Substance: DESVENLAFAXINE SUCCINATE
  14. REGLAN [Concomitant]
     Active Substance: METOCLOPRAMIDE HYDROCHLORIDE
  15. NEXIUM [Concomitant]
     Active Substance: ESOMEPRAZOLE MAGNESIUM
  16. ESOMEPRA [Concomitant]
     Active Substance: ESOMEPRAZOLE
  17. TUDORZA PRESSAIR [Concomitant]
     Active Substance: ACLIDINIUM BROMIDE

REACTIONS (1)
  - Diverticulitis [None]

NARRATIVE: CASE EVENT DATE: 20180327
